FAERS Safety Report 5114794-3 (Version None)
Quarter: 2006Q3

REPORT INFORMATION
  Report Type: 
  Country: None (occurrence: None)
  Receive Date: 20060921
  Receipt Date: 20060907
  Transmission Date: 20061208
  Serious: Yes (Other)
  Sender: FDA-Public Use
  Company Number: CIP06002113

PATIENT
  Age: 75 Year
  Sex: Male

DRUGS (2)
  1. DANTRIUM [Suspect]
     Dosage: ORAL
     Route: 048
  2. . [Concomitant]

REACTIONS (1)
  - NEPHROTIC SYNDROME [None]
